FAERS Safety Report 6809365-4 (Version None)
Quarter: 2010Q2

REPORT INFORMATION
  Report Type: 
  Country: None (occurrence: None)
  Receive Date: 20100630
  Receipt Date: 20090311
  Transmission Date: 20101027
  Serious: Yes (Hospitalization)
  Sender: FDA-Public Use
  Company Number: FR-ASTRAZENECA-2009CG00283

PATIENT
  Age: 23677 Day
  Sex: Female

DRUGS (12)
  1. CRESTOR [Suspect]
     Indication: HYPERCHOLESTEROLAEMIA
     Route: 048
     Dates: start: 20070101, end: 20070601
  2. FRACTAL [Suspect]
     Indication: HYPERCHOLESTEROLAEMIA
     Route: 048
     Dates: start: 20020101, end: 20030101
  3. LESCOL [Suspect]
     Indication: HYPERCHOLESTEROLAEMIA
     Route: 048
     Dates: start: 20031201, end: 20041101
  4. ZOCOR [Suspect]
     Indication: HYPERCHOLESTEROLAEMIA
     Route: 048
     Dates: start: 20041201, end: 20051001
  5. EZETROL [Suspect]
     Indication: HYPERCHOLESTEROLAEMIA
     Route: 048
     Dates: start: 20051101, end: 20060301
  6. LIPANTHYL [Suspect]
     Indication: HYPERCHOLESTEROLAEMIA
     Route: 048
     Dates: start: 20060301, end: 20061201
  7. QUESTRAN [Suspect]
     Indication: HYPERCHOLESTEROLAEMIA
     Route: 048
     Dates: start: 20070701, end: 20080501
  8. STATICONCEPT [Suspect]
     Route: 048
     Dates: start: 20080501
  9. HOMEOPATHY [Concomitant]
  10. BONIVA [Concomitant]
     Indication: OSTEOPOROSIS
  11. TELITHROMYCIN [Concomitant]
  12. LEKOVIT CA [Concomitant]

REACTIONS (1)
  - ORGANISING PNEUMONIA [None]
